FAERS Safety Report 10494889 (Version 1)
Quarter: 2014Q4

REPORT INFORMATION
  Report Type: Report from Study
  Country: US (occurrence: US)
  Receive Date: 20141003
  Receipt Date: 20141003
  Transmission Date: 20150528
  Serious: Yes (Other)
  Sender: FDA-Public Use
  Company Number: US-SA-2014SA134661

PATIENT
  Age: 67 Year
  Sex: Male

DRUGS (2)
  1. LANTUS SOLOSTAR [Suspect]
     Active Substance: INSULIN GLARGINE
     Indication: DIABETES MELLITUS
     Dosage: DOSE:35 UNIT(S)
     Route: 065
     Dates: start: 2013
  2. JANUVIA [Suspect]
     Active Substance: SITAGLIPTIN PHOSPHATE
     Dosage: DOSE:10 UNIT(S)
     Route: 065

REACTIONS (6)
  - Blood glucose increased [Unknown]
  - Tremor [Unknown]
  - Blood glucose decreased [Unknown]
  - Neoplasm malignant [Unknown]
  - Blood potassium increased [Unknown]
  - Eye operation [Unknown]

NARRATIVE: CASE EVENT DATE: 20140923
